FAERS Safety Report 5334222-2 (Version None)
Quarter: 2007Q2

REPORT INFORMATION
  Report Type: 
  Country: None (occurrence: None)
  Receive Date: 20070525
  Receipt Date: 20070514
  Transmission Date: 20071010
  Serious: Yes (Congenital Anomaly)
  Sender: FDA-Public Use
  Company Number: DEWYE639914MAY07

PATIENT
  Sex: Male
  Weight: 2.48 kg

DRUGS (1)
  1. VENLAFAXINE HCL [Suspect]
     Indication: DEPRESSION
     Route: 064
     Dates: start: 20060621, end: 20070305

REACTIONS (1)
  - CONGENITAL GENITAL MALFORMATION [None]
